FAERS Safety Report 8385982-8 (Version None)
Quarter: 2012Q2

REPORT INFORMATION
  Report Type: 
  Country: None (occurrence: None)
  Receive Date: 20120525
  Receipt Date: 20120515
  Transmission Date: 20120825
  Serious: Yes (Other)
  Sender: FDA-Public Use
  Company Number: FR-JNJFOC-20110709034

PATIENT
  Sex: Female

DRUGS (6)
  1. VALPROIC ACID [Concomitant]
     Indication: PRODUCT USED FOR UNKNOWN INDICATION
     Route: 065
  2. PARLODEL [Concomitant]
     Indication: PITUITARY TUMOUR BENIGN
     Route: 065
  3. ANGIOTENSIN-CONVERTING ENZYME INHIBITORS [Concomitant]
     Indication: PRODUCT USED FOR UNKNOWN INDICATION
     Route: 065
  4. RISPERDAL [Suspect]
     Indication: SCHIZOAFFECTIVE DISORDER
     Route: 048
  5. RISPERDAL [Suspect]
     Route: 048
     Dates: end: 20110922
  6. RISPERDAL [Suspect]
     Route: 048
     Dates: start: 20050101

REACTIONS (2)
  - CONDITION AGGRAVATED [None]
  - HYPERPROLACTINAEMIA [None]
